FAERS Safety Report 23855088 (Version 2)
Quarter: 2024Q3

REPORT INFORMATION
  Report Type: Spontaneous
  Country: US (occurrence: US)
  Receive Date: 20240514
  Receipt Date: 20240805
  Transmission Date: 20241017
  Serious: No
  Sender: SANOFI AVENTIS
  Company Number: US-SA-SAC20240507000800

PATIENT
  Age: 65 Year
  Sex: Male

DRUGS (1)
  1. DUPIXENT [Suspect]
     Active Substance: DUPILUMAB
     Indication: Asthma
     Dosage: 300 MG, QOW
     Route: 058
     Dates: start: 202304

REACTIONS (6)
  - Skin swelling [Unknown]
  - Dyspnoea [Unknown]
  - Scab [Unknown]
  - Erythema [Unknown]
  - Skin exfoliation [Unknown]
  - Rash [Recovered/Resolved]
